FAERS Safety Report 11345481 (Version 1)
Quarter: 2015Q3

REPORT INFORMATION
  Report Type: Spontaneous
  Country: CN (occurrence: CN)
  Receive Date: 20150806
  Receipt Date: 20150806
  Transmission Date: 20151125
  Serious: Yes (Hospitalization, Other)
  Sender: FDA-Public Use
  Company Number: CN-PFIZER INC-2015228597

PATIENT
  Age: 59 Year
  Sex: Male

DRUGS (3)
  1. MEDROL [Suspect]
     Active Substance: METHYLPREDNISOLONE
     Dosage: 7 TABLETS (4MG-TABLET) DAILY
     Route: 048
     Dates: start: 20150319
  2. SOLU-MEDROL [Suspect]
     Active Substance: METHYLPREDNISOLONE SODIUM SUCCINATE
     Indication: ANTIINFLAMMATORY THERAPY
     Dosage: 40 MG, 1X/DAY
     Route: 041
     Dates: start: 20150304
  3. MEDROL [Suspect]
     Active Substance: METHYLPREDNISOLONE
     Indication: NEPHRITIC SYNDROME
     Dosage: 7 TABLETS (4MG-TABLET) DAILY
     Route: 048
     Dates: start: 20150209, end: 20150303

REACTIONS (6)
  - Chest discomfort [Recovering/Resolving]
  - Condition aggravated [Recovering/Resolving]
  - Tremor [Unknown]
  - Dyspnoea [Recovering/Resolving]
  - Rash [Unknown]
  - Flushing [Unknown]

NARRATIVE: CASE EVENT DATE: 201502
